FAERS Safety Report 8192457 (Version 4)
Quarter: 2014Q1

REPORT INFORMATION
  Report Type: Spontaneous
  Country: US (occurrence: US)
  Receive Date: 20111020
  Receipt Date: 20140308
  Transmission Date: 20141002
  Serious: Yes (Hospitalization, Other)
  Sender: FDA-Public Use
  Company Number: US-ROCHE-790160

PATIENT
  Age: 21 Year
  Sex: Male
  Weight: 87.17 kg

DRUGS (1)
  1. ACCUTANE [Suspect]
     Indication: ACNE CYSTIC
     Route: 048
     Dates: start: 200807, end: 20081224

REACTIONS (10)
  - Crohn^s disease [Unknown]
  - Abdominal abscess [Unknown]
  - Depression [Unknown]
  - Colonic fistula [Unknown]
  - Dry skin [Unknown]
  - Back pain [Unknown]
  - Lip dry [Unknown]
  - Fatigue [Unknown]
  - Dry eye [Unknown]
  - Cheilitis [Unknown]
